FAERS Safety Report 15430481 (Version 1)
Quarter: 2018Q3

REPORT INFORMATION
  Report Type: Spontaneous
  Country: FI (occurrence: FI)
  Receive Date: 20180926
  Receipt Date: 20180926
  Transmission Date: 20181010
  Serious: Yes (Other)
  Sender: FDA-Public Use
  Company Number: FI-JNJFOC-20180922485

PATIENT
  Age: 78 Year
  Sex: Male

DRUGS (7)
  1. FURESIS [Concomitant]
     Active Substance: FUROSEMIDE
     Route: 065
  2. BISOPROLOL RATIOPHARM [Concomitant]
     Active Substance: BISOPROLOL
     Route: 065
  3. MAREVAN FORTE [Concomitant]
     Active Substance: WARFARIN SODIUM
     Route: 065
  4. FINASTERID ORION [Concomitant]
     Route: 065
  5. STELARA [Suspect]
     Active Substance: USTEKINUMAB
     Indication: PSORIASIS
     Route: 058
     Dates: start: 20170922, end: 20180405
  6. THYROXIN [Concomitant]
     Active Substance: LEVOTHYROXINE
     Route: 065
  7. LOSATRIX [Concomitant]
     Active Substance: LOSARTAN POTASSIUM
     Route: 065

REACTIONS (1)
  - Pneumonia [Unknown]

NARRATIVE: CASE EVENT DATE: 20180405
